FAERS Safety Report 15246939 (Version 2)
Quarter: 2018Q3

REPORT INFORMATION
  Report Type: Spontaneous
  Country: US (occurrence: US)
  Receive Date: 20180806
  Receipt Date: 20180827
  Transmission Date: 20181010
  Serious: No
  Sender: FDA-Public Use
  Company Number: US-009507513-1808USA002013

PATIENT
  Age: 21 Year
  Sex: Female
  Weight: 131.97 kg

DRUGS (1)
  1. NEXPLANON [Suspect]
     Active Substance: ETONOGESTREL
     Dosage: 68 MG, EVERY 3 YEARS
     Route: 059
     Dates: start: 20180801

REACTIONS (4)
  - Complication of device insertion [Not Recovered/Not Resolved]
  - No adverse event [Unknown]
  - Device deployment issue [Unknown]
  - Product availability issue [Unknown]

NARRATIVE: CASE EVENT DATE: 201808
